FAERS Safety Report 9269412 (Version 3)
Quarter: 2013Q2

REPORT INFORMATION
  Report Type: Spontaneous
  Country: SE (occurrence: SE)
  Receive Date: 20130503
  Receipt Date: 20130607
  Transmission Date: 20140414
  Serious: Yes (Other)
  Sender: FDA-Public Use
  Company Number: SE-ROCHE-1220796

PATIENT
  Age: 41 Year
  Sex: Female

DRUGS (19)
  1. PEGASYS [Suspect]
     Indication: HEPATITIS
     Route: 058
     Dates: start: 20130125, end: 20130307
  2. PEGASYS [Suspect]
     Dosage: DOSE REDUCED
     Route: 065
  3. COPEGUS [Suspect]
     Indication: HEPATITIS
     Route: 048
     Dates: start: 20130125, end: 20130307
  4. VICTRELIS [Suspect]
     Indication: HEPATITIS
     Route: 048
     Dates: start: 20130227, end: 20130307
  5. CONCERTA [Concomitant]
     Route: 065
  6. CONCERTA [Concomitant]
     Route: 065
  7. CONCERTA [Concomitant]
     Route: 065
  8. LEVAXIN [Concomitant]
     Route: 065
  9. ZOLPIDEM [Concomitant]
  10. LORATADIN [Concomitant]
  11. PROPAVAN [Concomitant]
     Route: 065
  12. BETAPRED [Concomitant]
  13. BEHEPAN [Concomitant]
     Route: 065
  14. TAVEGYL [Concomitant]
     Route: 065
  15. DUROFERON [Concomitant]
     Route: 065
  16. XANOR [Concomitant]
     Route: 065
  17. EPIPEN [Concomitant]
     Route: 065
  18. EFFEXOR [Concomitant]
     Route: 065
  19. IDEOS [Concomitant]
     Dosage: IDEOS CHEWABLE TABLET 500 MG/ 400IE
     Route: 065

REACTIONS (10)
  - Face oedema [Recovered/Resolved]
  - Stomatitis [Recovered/Resolved]
  - Pharyngeal oedema [Recovered/Resolved]
  - Lip swelling [Recovered/Resolved]
  - Pyrexia [Recovered/Resolved]
  - Fatigue [Recovered/Resolved]
  - Pain [Recovered/Resolved]
  - Rash [Recovered/Resolved]
  - Oral mucosal blistering [Recovered/Resolved]
  - Myalgia [Recovered/Resolved]
